FAERS Safety Report 4745188-8 (Version None)
Quarter: 2005Q3

REPORT INFORMATION
  Report Type: 
  Country: None (occurrence: None)
  Receive Date: 20050815
  Receipt Date: 20050809
  Transmission Date: 20060218
  Serious: Yes (Hospitalization)
  Sender: FDA-Public Use
  Company Number: BE-ROCHE-413426

PATIENT
  Age: 5 Year
  Sex: Male

DRUGS (1)
  1. ROCEPHIN [Suspect]
     Indication: LYME DISEASE
     Dosage: DOSAGE REGIMEN REPORTED AS DAILY. STRENGTH AND FORMULATION REPORTED AS ^G^.
     Route: 042
     Dates: start: 20050715, end: 20050815

REACTIONS (1)
  - CHOLELITHIASIS [None]
